FAERS Safety Report 23912537 (Version 1)
Quarter: 2024Q2

REPORT INFORMATION
  Report Type: Spontaneous
  Country: US (occurrence: US)
  Receive Date: 20240528
  Receipt Date: 20240528
  Transmission Date: 20240716
  Serious: Yes (Other)
  Sender: FDA-Public Use
  Company Number: US-BRISTOL-MYERS SQUIBB COMPANY-2024-083696

PATIENT
  Age: 82 Year
  Weight: 99.34 kg

DRUGS (1)
  1. POMALYST [Suspect]
     Active Substance: POMALIDOMIDE
     Indication: Plasma cell myeloma
     Dosage: FREQUENCY:  3 WEEKS ON 1 WEEK OFF
     Route: 048

REACTIONS (4)
  - Product prescribing issue [Unknown]
  - Therapy interrupted [Unknown]
  - Neuropathy peripheral [Unknown]
  - Arthritis infective [Unknown]
